FAERS Safety Report 11138892 (Version 1)
Quarter: 2015Q2

REPORT INFORMATION
  Report Type: Report from Study
  Country: US (occurrence: US)
  Receive Date: 20150527
  Receipt Date: 20150527
  Transmission Date: 20150821
  Serious: Yes (Other)
  Sender: FDA-Public Use
  Company Number: US-BAYER-2015-262881

PATIENT
  Age: 29 Year
  Sex: Male

DRUGS (1)
  1. BETASERON [Suspect]
     Active Substance: INTERFERON BETA-1B
     Indication: SECONDARY PROGRESSIVE MULTIPLE SCLEROSIS
     Dosage: 16 MIU, QOD
     Route: 058
     Dates: start: 19940119

REACTIONS (14)
  - Abdominal pain [Not Recovered/Not Resolved]
  - Product use issue [None]
  - Large intestine polyp [Not Recovered/Not Resolved]
  - Neuralgia [Not Recovered/Not Resolved]
  - Large intestinal stenosis [Not Recovered/Not Resolved]
  - Fall [Recovered/Resolved]
  - Product use issue [None]
  - Depression [None]
  - Neuralgia [Recovered/Resolved]
  - Blindness unilateral [None]
  - Abdominal mass [Not Recovered/Not Resolved]
  - Headache [Not Recovered/Not Resolved]
  - Multiple sclerosis relapse [Recovered/Resolved]
  - Optic neuritis [Not Recovered/Not Resolved]

NARRATIVE: CASE EVENT DATE: 19940119
